FAERS Safety Report 4987525-5 (Version None)
Quarter: 2006Q2

REPORT INFORMATION
  Report Type: 
  Country: None (occurrence: None)
  Receive Date: 20060427
  Receipt Date: 20060427
  Transmission Date: 20061013
  Serious: No
  Sender: FDA-Public Use
  Company Number: None

PATIENT
  Sex: Female
  Weight: 115.2136 kg

DRUGS (2)
  1. TRAMADOL HCL [Suspect]
     Indication: FIBROMYALGIA
     Dosage: 50MG  ONE TAB QID ORAL
     Route: 048
     Dates: start: 20020101
  2. TRAMADOL HCL [Suspect]
     Indication: PAIN
     Dosage: 50MG  ONE TAB QID ORAL
     Route: 048
     Dates: start: 20020101

REACTIONS (3)
  - DIZZINESS [None]
  - HEADACHE [None]
  - REACTION TO DRUG EXCIPIENTS [None]
